FAERS Safety Report 17009139 (Version 1)
Quarter: 2019Q4

REPORT INFORMATION
  Report Type: Spontaneous
  Country: US (occurrence: US)
  Receive Date: 20191108
  Receipt Date: 20191108
  Transmission Date: 20200122
  Serious: Yes (Other)
  Sender: FDA-Public Use
  Company Number: US-BAUSCH-BL-2019-059415

PATIENT

DRUGS (2)
  1. APRISO [Suspect]
     Active Substance: MESALAMINE
     Dosage: STRETCH MEDICATION BY CUTTING BACK ON THE DOSAGE
     Route: 065
  2. APRISO [Suspect]
     Active Substance: MESALAMINE
     Indication: COLITIS ULCERATIVE
     Route: 065

REACTIONS (5)
  - Symptom recurrence [Unknown]
  - Colitis ulcerative [Unknown]
  - Intentional product use issue [Unknown]
  - Insurance issue [Unknown]
  - Inability to afford medication [Unknown]
